FAERS Safety Report 12942948 (Version 1)
Quarter: 2016Q4

REPORT INFORMATION
  Report Type: Spontaneous
  Country: US (occurrence: US)
  Receive Date: 20161115
  Receipt Date: 20161115
  Transmission Date: 20170207
  Serious: Yes (Death, Hospitalization)
  Sender: FDA-Public Use
  Company Number: US-JNJFOC-20161111719

PATIENT
  Age: 9 Decade
  Sex: Female

DRUGS (1)
  1. XARELTO [Suspect]
     Active Substance: RIVAROXABAN
     Indication: PULMONARY EMBOLISM
     Route: 048
     Dates: start: 201211

REACTIONS (4)
  - Aortic stenosis [Fatal]
  - Chronic obstructive pulmonary disease [Fatal]
  - Gastrointestinal haemorrhage [Fatal]
  - Sepsis [Fatal]

NARRATIVE: CASE EVENT DATE: 20140120
